FAERS Safety Report 16089298 (Version 1)
Quarter: 2019Q2

REPORT INFORMATION
  Report Type: Spontaneous
  Country: US (occurrence: US)
  Receive Date: 20190319
  Receipt Date: 20190319
  Transmission Date: 20190711
  Serious: Yes (Other)
  Sender: FDA-Public Use
  Company Number: None

PATIENT
  Age: 63 Year
  Sex: Female

DRUGS (3)
  1. HUMIRA [Suspect]
     Active Substance: ADALIMUMAB
     Indication: RHEUMATOID ARTHRITIS
     Dosage: ?          OTHER FREQUENCY:EVERY OTHER WEEK;?
     Route: 058
  2. IBUPROFEN 800MG TABLETS [Concomitant]
     Dates: start: 20190220
  3. TORSEMIDE 5MG TABLETS [Concomitant]
     Dates: start: 20190216

REACTIONS (1)
  - Rheumatoid arthritis [None]

NARRATIVE: CASE EVENT DATE: 20190301
